FAERS Safety Report 24307826 (Version 1)
Quarter: 2024Q3

REPORT INFORMATION
  Report Type: Spontaneous
  Country: US (occurrence: None)
  Receive Date: 20240911
  Receipt Date: 20240911
  Transmission Date: 20241016
  Serious: Yes (Other)
  Sender: Public
  Company Number: None

PATIENT
  Age: 72 Year
  Sex: Female
  Weight: 50.4 kg

DRUGS (13)
  1. RECLAST [Suspect]
     Active Substance: ZOLEDRONIC ACID
     Indication: Osteoporosis
     Dosage: OTHER FREQUENCY : 1 TIME INFUSION;?
     Route: 042
     Dates: start: 20240823
  2. SYNTHROID [Concomitant]
     Active Substance: LEVOTHYROXINE SODIUM
  3. ROSUVASTATIN [Concomitant]
     Active Substance: ROSUVASTATIN\ROSUVASTATIN CALCIUM
  4. XIIDRA [Concomitant]
     Active Substance: LIFITEGRAST
  5. CALCIUM [Concomitant]
     Active Substance: CALCIUM
  6. VITAMIN D NOS [Concomitant]
     Active Substance: CHOLECALCIFEROL\ERGOCALCIFEROL
  7. MAGNESIUM [Concomitant]
     Active Substance: MAGNESIUM
  8. VITAMIN K [Concomitant]
     Active Substance: PHYTONADIONE
  9. VITAMINS [Concomitant]
     Active Substance: VITAMINS
  10. Tumeric Curcumin [Concomitant]
  11. ZYRTEC [Concomitant]
     Active Substance: CETIRIZINE HYDROCHLORIDE
  12. COENZYME Q10 [Concomitant]
     Active Substance: DIETARY SUPPLEMENT\UBIDECARENONE
  13. VITAMIN C [Concomitant]
     Active Substance: ASCORBIC ACID

REACTIONS (12)
  - Infusion related reaction [None]
  - Middle insomnia [None]
  - Back pain [None]
  - Mobility decreased [None]
  - Drug ineffective [None]
  - Gait disturbance [None]
  - Tinnitus [None]
  - Feeling hot [None]
  - Pain [None]
  - Dyspnoea [None]
  - Myalgia [None]
  - Musculoskeletal chest pain [None]

NARRATIVE: CASE EVENT DATE: 20240823
